FAERS Safety Report 15899982 (Version 1)
Quarter: 2019Q1

REPORT INFORMATION
  Report Type: Report from Study
  Country: US (occurrence: US)
  Receive Date: 20190201
  Receipt Date: 20190201
  Transmission Date: 20190417
  Serious: Yes (Other)
  Sender: FDA-Public Use
  Company Number: US-UCBSA-2019003551

PATIENT
  Age: 33 Year
  Sex: Female

DRUGS (1)
  1. CERTOLIZUMAB PEGOL [Suspect]
     Active Substance: CERTOLIZUMAB PEGOL
     Indication: PSORIASIS
     Dosage: 400 MG, EV 2 WEEKS(QOW)
     Dates: start: 20181231, end: 20181231

REACTIONS (4)
  - Swelling of eyelid [Recovered/Resolved]
  - Throat tightness [Recovered/Resolved]
  - Throat irritation [Recovered/Resolved]
  - Urticaria [Recovered/Resolved]

NARRATIVE: CASE EVENT DATE: 20181231
